FAERS Safety Report 25553183 (Version 2)
Quarter: 2025Q3

REPORT INFORMATION
  Report Type: Spontaneous
  Country: US (occurrence: US)
  Receive Date: 20250715
  Receipt Date: 20250728
  Transmission Date: 20251020
  Serious: Yes (Hospitalization, Disabling)
  Sender: AUROBINDO
  Company Number: US-MLMSERVICE-20250626-PI552314-00218-1

PATIENT
  Age: 60 Year
  Sex: Female

DRUGS (2)
  1. METHOTREXATE [Suspect]
     Active Substance: METHOTREXATE
     Indication: Rheumatoid arthritis
     Route: 065
  2. ETANERCEPT [Suspect]
     Active Substance: ETANERCEPT
     Indication: Rheumatoid arthritis
     Route: 065

REACTIONS (2)
  - Tenosynovitis [Recovering/Resolving]
  - Staphylococcal infection [Recovering/Resolving]
